FAERS Safety Report 8823847 (Version 1)
Quarter: 2012Q4

REPORT INFORMATION
  Report Type: Report from Study
  Country: US (occurrence: US)
  Receive Date: 20121003
  Receipt Date: 20121003
  Transmission Date: 20130627
  Serious: Yes (Hospitalization)
  Sender: FDA-Public Use
  Company Number: US-009507513-1210USA000802

PATIENT
  Age: 43 Year
  Sex: Female

DRUGS (7)
  1. JANUVIA [Suspect]
     Dosage: 100 mg, qd
     Route: 048
  2. PLACEBO [Suspect]
     Route: 058
  3. METFORMIN HYDROCHLORIDE [Concomitant]
  4. ALPRAZOLAM [Concomitant]
  5. GEMFIBROZIL [Concomitant]
  6. DICLOFENAC SODIUM [Concomitant]
  7. ASPIRIN [Concomitant]

REACTIONS (6)
  - Bile duct stone [Unknown]
  - Blood glucose increased [Unknown]
  - Prothrombin level increased [Unknown]
  - Alanine aminotransferase increased [Unknown]
  - Blood bilirubin increased [Unknown]
  - Blood alkaline phosphatase increased [Unknown]
